FAERS Safety Report 4377362-7 (Version None)
Quarter: 2004Q2

REPORT INFORMATION
  Report Type: 
  Country: None (occurrence: None)
  Receive Date: 20040615
  Receipt Date: 20040607
  Transmission Date: 20050107
  Serious: Yes (Death)
  Sender: FDA-Public Use
  Company Number: 200414359US

PATIENT
  Sex: Female

DRUGS (12)
  1. LOVENOX [Suspect]
     Indication: HIP FRACTURE
     Dosage: DOSE: UNK
     Dates: start: 20040509
  2. ASPIRIN [Concomitant]
     Dosage: DOSE: UNK
  3. ZYPREXA [Concomitant]
     Dosage: DOSE: UNK
  4. LISINOPRIL [Concomitant]
     Dosage: DOSE: NOT PROVIDED
  5. RYTHMOL [Concomitant]
     Dosage: DOSE: NOT PROVIDED
  6. LASIX [Concomitant]
     Dosage: DOSE: NOT PROVIDED
  7. ZOLOFT [Concomitant]
     Dosage: DOSE: NOT PROVIDED
  8. RANITIDINE [Concomitant]
     Dosage: DOSE: NOT PROVIDED
  9. PEPCID [Concomitant]
     Dosage: DOSE: NOT PROVIDED
  10. SINGULAIR [Concomitant]
     Dosage: DOSE: NOT PROVIDED
  11. OXYGEN [Concomitant]
     Dosage: DOSE: NOT PROVIDED
  12. UNKNOWN DRUG [Concomitant]
     Dosage: DOSE: NOT PROVIDED

REACTIONS (1)
  - PULMONARY EMBOLISM [None]
